FAERS Safety Report 4911172-4 (Version None)
Quarter: 2006Q1

REPORT INFORMATION
  Report Type: 
  Country: None (occurrence: None)
  Receive Date: 20060209
  Receipt Date: 20060126
  Transmission Date: 20060701
  Serious: Yes (Death, Hospitalization, Other)
  Sender: FDA-Public Use
  Company Number: BR-2006-001478

PATIENT
  Age: 32 Year
  Sex: Female

DRUGS (1)
  1. BETAFERON(INTERFERON BETA - 1B) INJECTION, 250UG [Suspect]
     Indication: MULTIPLE SCLEROSIS
     Dosage: 9.6 MIU, 3X/WEEK, SUBCUTANEOUS
     Route: 058
     Dates: start: 20031101, end: 20051228

REACTIONS (16)
  - ALOPECIA [None]
  - ANAEMIA [None]
  - ASTHENIA [None]
  - CARDIOPULMONARY FAILURE [None]
  - ESCHAR [None]
  - GENERAL PHYSICAL HEALTH DETERIORATION [None]
  - KIDNEY INFECTION [None]
  - LOCALISED INFECTION [None]
  - MENTAL DISORDER DUE TO A GENERAL MEDICAL CONDITION [None]
  - NECROSIS [None]
  - ORAL INTAKE REDUCED [None]
  - PYREXIA [None]
  - SENSORY DISTURBANCE [None]
  - SPEECH DISORDER [None]
  - SWELLING [None]
  - URINARY TRACT INFECTION [None]
